FAERS Safety Report 5853684-5 (Version None)
Quarter: 2008Q3

REPORT INFORMATION
  Report Type: 
  Country: None (occurrence: None)
  Receive Date: 20080822
  Receipt Date: 20080814
  Transmission Date: 20090109
  Serious: Yes (Other)
  Sender: FDA-Public Use
  Company Number: MX-ASTRAZENECA-2008UW16500

PATIENT
  Age: 703 Month
  Sex: Male
  Weight: 63 kg

DRUGS (1)
  1. ZOLADEX [Suspect]
     Indication: PROSTATIC HAEMORRHAGE
     Route: 058
     Dates: start: 20070701, end: 20070701

REACTIONS (3)
  - ABDOMINAL DISTENSION [None]
  - FEELING ABNORMAL [None]
  - RENAL CANCER [None]
